FAERS Safety Report 20105687 (Version 1)
Quarter: 2021Q4

REPORT INFORMATION
  Report Type: Report from Study
  Country: GB (occurrence: GB)
  Receive Date: 20211124
  Receipt Date: 20211124
  Transmission Date: 20220303
  Serious: Yes (Disabling)
  Sender: FDA-Public Use
  Company Number: GB-SA-SAC20211116001620

PATIENT
  Age: 71 Year
  Sex: Male

DRUGS (1)
  1. DUPILUMAB [Suspect]
     Active Substance: DUPILUMAB
     Indication: Dermatitis atopic
     Dosage: 300 MG
     Route: 058
     Dates: start: 20211109

REACTIONS (5)
  - Loss of personal independence in daily activities [Unknown]
  - Eczema [Unknown]
  - Rash [Unknown]
  - Pruritus [Unknown]
  - Sleep disorder [Unknown]

NARRATIVE: CASE EVENT DATE: 20211114
